FAERS Safety Report 8575434-4 (Version None)
Quarter: 2012Q3

REPORT INFORMATION
  Report Type: 
  Country: None (occurrence: None)
  Receive Date: 20120807
  Receipt Date: 20120726
  Transmission Date: 20120928
  Serious: Yes (Other)
  Sender: FDA-Public Use
  Company Number: PHHY2012IT064817

PATIENT
  Age: 35 Year
  Sex: Male

DRUGS (2)
  1. INTERFERON BETA-1B [Suspect]
     Dosage: 22 UG, TIW
     Route: 058
  2. INTERFERON BETA-1B [Suspect]
     Indication: MULTIPLE SCLEROSIS
     Dosage: 22 UG, TIW
     Route: 058

REACTIONS (4)
  - SARCOIDOSIS [None]
  - DISEASE RECURRENCE [None]
  - TOXICITY TO VARIOUS AGENTS [None]
  - MULTIPLE SCLEROSIS [None]
